FAERS Safety Report 19100311 (Version 4)
Quarter: 2021Q3

REPORT INFORMATION
  Report Type: Spontaneous
  Country: JP (occurrence: JP)
  Receive Date: 20210407
  Receipt Date: 20210902
  Transmission Date: 20211014
  Serious: Yes (Hospitalization, Other)
  Sender: FDA-Public Use
  Company Number: JP-JNJFOC-20210355520

PATIENT
  Age: 64 Year
  Sex: Female

DRUGS (2)
  1. OPSUMIT [Suspect]
     Active Substance: MACITENTAN
     Indication: PULMONARY ARTERIAL HYPERTENSION
     Route: 048
     Dates: start: 20170828
  2. OPSUMIT [Suspect]
     Active Substance: MACITENTAN
     Indication: SYSTEMIC SCLERODERMA
     Route: 048
     Dates: start: 20170818

REACTIONS (5)
  - Fall [Unknown]
  - Interstitial lung disease [Recovered/Resolved]
  - Treatment noncompliance [Unknown]
  - Femoral neck fracture [Unknown]
  - Scleroderma [Recovered/Resolved]

NARRATIVE: CASE EVENT DATE: 20210304
